FAERS Safety Report 8072811-5 (Version None)
Quarter: 2012Q1

REPORT INFORMATION
  Report Type: 
  Country: None (occurrence: None)
  Receive Date: 20120123
  Receipt Date: 20120123
  Transmission Date: 20120608
  Serious: Yes (Other)
  Sender: FDA-Public Use
  Company Number: None

PATIENT
  Sex: Male
  Weight: 30.1188 kg

DRUGS (2)
  1. CONCERTA [Suspect]
     Indication: ATTENTION DEFICIT/HYPERACTIVITY DISORDER
     Dosage: 36 MG QAM    STARTED BRAND NAME 9-11-10 CHANGED TO GENERIC 9-13-11
  2. CONCERTA [Suspect]
     Dosage: 18 MG QAM

REACTIONS (1)
  - PRODUCT SUBSTITUTION ISSUE [None]
